FAERS Safety Report 10100730 (Version 1)
Quarter: 2014Q2

REPORT INFORMATION
  Report Type: Spontaneous
  Country: CA (occurrence: CA)
  Receive Date: 20140423
  Receipt Date: 20140423
  Transmission Date: 20141212
  Serious: Yes (Other)
  Sender: FDA-Public Use
  Company Number: CA-MYLANLABS-2014S1008624

PATIENT
  Age: 56 Year
  Sex: Female

DRUGS (2)
  1. METHOTREXATE [Suspect]
     Indication: DERMATITIS ATOPIC
     Route: 048
  2. METHOTREXATE [Suspect]
     Indication: OFF LABEL USE
     Route: 048

REACTIONS (5)
  - Skin necrosis [Recovered/Resolved]
  - Drug administration error [Unknown]
  - Pyrexia [Unknown]
  - Neutropenia [Unknown]
  - Mouth ulceration [Unknown]
